FAERS Safety Report 8516728-8 (Version None)
Quarter: 2012Q2

REPORT INFORMATION
  Report Type: 
  Country: None (occurrence: None)
  Receive Date: 20120406
  Receipt Date: 20100423
  Transmission Date: 20120825
  Serious: Yes (Hospitalization, Other)
  Sender: FDA-Public Use
  Company Number: PHEH2009US10550

PATIENT
  Age: 58 Year
  Sex: Male

DRUGS (11)
  1. MAGNESIUM (MAGNESIUM) [Concomitant]
  2. BYSTOLIC [Concomitant]
  3. POTASSIUM (POTASSIUM) [Concomitant]
  4. COUMADIN [Concomitant]
  5. FLOMAX [Concomitant]
  6. BUMETANIDE [Concomitant]
  7. ZANTAC [Concomitant]
  8. LEVEMIR [Concomitant]
  9. PLAVIX [Concomitant]
  10. TASIGNA [Suspect]
     Indication: CHRONIC MYELOID LEUKAEMIA
     Dosage: 200 MG, BID
  11. OXYCONTIN [Concomitant]

REACTIONS (7)
  - ANGINA PECTORIS [None]
  - FLUID RETENTION [None]
  - ATRIAL FIBRILLATION [None]
  - DYSPNOEA [None]
  - CARDIAC PACEMAKER INSERTION [None]
  - CARDIAC FAILURE CONGESTIVE [None]
  - CARDIAC ABLATION [None]
